FAERS Safety Report 4793787-X (Version None)
Quarter: 2005Q4

REPORT INFORMATION
  Report Type: 
  Country: None (occurrence: None)
  Receive Date: 20051011
  Receipt Date: 20050928
  Transmission Date: 20060501
  Serious: Yes (Life-Threatening, Hospitalization)
  Sender: FDA-Public Use
  Company Number: 200518644GDDC

PATIENT
  Age: 52 Year
  Sex: Female
  Weight: 82.2 kg

DRUGS (11)
  1. DOCETAXEL [Suspect]
     Indication: NON-SMALL CELL LUNG CANCER
     Route: 042
     Dates: start: 20050504, end: 20050810
  2. ONDANSETRON [Concomitant]
     Dates: start: 20050504
  3. SOMAC [Concomitant]
     Indication: DYSPEPSIA
     Dates: start: 20050809
  4. LORAZEPAM [Concomitant]
     Indication: INSOMNIA
     Dates: start: 20050615
  5. DIAZEPAM [Concomitant]
     Indication: ANXIETY
  6. MAXOLON [Concomitant]
     Dates: start: 20050706
  7. OXYNORM [Concomitant]
     Indication: PAIN
  8. TEMAZEPAM [Concomitant]
     Indication: INSOMNIA
     Dates: start: 20050531
  9. MIRTAZAPINE [Concomitant]
     Indication: DEPRESSION
  10. ENDONE [Concomitant]
     Indication: PAIN
     Dates: start: 20050627
  11. MYLANTA [Concomitant]
     Indication: DYSPEPSIA
     Dates: start: 20050701

REACTIONS (7)
  - ALCOHOL USE [None]
  - DEPRESSION [None]
  - DRUG INTERACTION [None]
  - INTENTIONAL DRUG MISUSE [None]
  - MOOD SWINGS [None]
  - MULTIPLE DRUG OVERDOSE [None]
  - SOMNOLENCE [None]
